FAERS Safety Report 25190367 (Version 1)
Quarter: 2025Q2

REPORT INFORMATION
  Report Type: Spontaneous
  Country: RO (occurrence: RO)
  Receive Date: 20250411
  Receipt Date: 20250411
  Transmission Date: 20250717
  Serious: Yes (Death, Life-Threatening, Other)
  Sender: AMGEN
  Company Number: RO-AMGEN-ROUSP2025071281

PATIENT

DRUGS (4)
  1. KYPROLIS [Suspect]
     Active Substance: CARFILZOMIB
     Indication: Plasma cell myeloma refractory
     Route: 065
  2. DARATUMUMAB [Suspect]
     Active Substance: DARATUMUMAB
     Indication: Plasma cell myeloma refractory
     Route: 065
  3. DEXAMETHASONE [Suspect]
     Active Substance: DEXAMETHASONE
     Indication: Plasma cell myeloma refractory
     Route: 065
  4. LENALIDOMIDE [Suspect]
     Active Substance: LENALIDOMIDE
     Indication: Plasma cell myeloma refractory
     Route: 065

REACTIONS (45)
  - Adverse reaction [Fatal]
  - Infection [Fatal]
  - Renal disorder [Fatal]
  - Cardiac disorder [Fatal]
  - Lung disorder [Fatal]
  - Plasma cell myeloma [Fatal]
  - Pneumonia [Fatal]
  - Respiratory tract infection [Fatal]
  - Cardiac failure [Unknown]
  - Renal failure [Unknown]
  - Acute kidney injury [Unknown]
  - Myocardial infarction [Unknown]
  - Neuropathy peripheral [Unknown]
  - Thrombocytopenia [Unknown]
  - Syncope [Unknown]
  - Hypokalaemia [Unknown]
  - Thrombosis [Unknown]
  - Embolism [Unknown]
  - Fatigue [Unknown]
  - Hypertension [Unknown]
  - Upper respiratory tract infection [Unknown]
  - Bronchitis [Unknown]
  - Anaemia [Unknown]
  - Diarrhoea [Unknown]
  - Nausea [Unknown]
  - Cough [Unknown]
  - Dyspnoea [Unknown]
  - Insomnia [Unknown]
  - Back pain [Unknown]
  - Pyrexia [Unknown]
  - Rash [Unknown]
  - Hypotension [Unknown]
  - Urticaria [Unknown]
  - Face oedema [Unknown]
  - Hypersensitivity [Unknown]
  - Eye pruritus [Unknown]
  - Eyelid oedema [Unknown]
  - Constipation [Unknown]
  - Vomiting [Unknown]
  - Asthenia [Unknown]
  - Oedema peripheral [Unknown]
  - Muscle spasms [Unknown]
  - Headache [Unknown]
  - Hypocalcaemia [Unknown]
  - Hyperglycaemia [Unknown]
